FAERS Safety Report 23360956 (Version 1)
Quarter: 2024Q1

REPORT INFORMATION
  Report Type: Spontaneous
  Country: US (occurrence: None)
  Receive Date: 20240101
  Receipt Date: 20240101
  Transmission Date: 20240410
  Serious: No
  Sender: FDA-Public Use
  Company Number: None

PATIENT

DRUGS (3)
  1. VELTASSA [Suspect]
     Active Substance: PATIROMER
  2. INSULIN NOS [Suspect]
     Active Substance: INSULIN NOS
  3. DEXTROSE [Suspect]
     Active Substance: DEXTROSE\DEXTROSE MONOHYDRATE

REACTIONS (4)
  - Lethargy [None]
  - Asthenia [None]
  - Blood glucose decreased [None]
  - Wrong product administered [None]
